FAERS Safety Report 17483746 (Version 4)
Quarter: 2020Q2

REPORT INFORMATION
  Report Type: Spontaneous
  Country: US (occurrence: US)
  Receive Date: 20200302
  Receipt Date: 20200416
  Transmission Date: 20200713
  Serious: Yes (Other)
  Sender: FDA-Public Use
  Company Number: NVSC2020US055629

PATIENT

DRUGS (1)
  1. BEOVU [Suspect]
     Active Substance: BROLUCIZUMAB-DBLL
     Indication: PRODUCT USED FOR UNKNOWN INDICATION
     Dosage: 6 MG, QMO (FORMULATION: SOLUTION)
     Route: 065
     Dates: start: 20200123, end: 20200224

REACTIONS (3)
  - Keratic precipitates [Recovering/Resolving]
  - Uveitis [Recovering/Resolving]
  - Eye pain [Recovering/Resolving]
